FAERS Safety Report 6959158-2 (Version None)
Quarter: 2010Q3

REPORT INFORMATION
  Report Type: 
  Country: None (occurrence: None)
  Receive Date: 20100831
  Receipt Date: 20100817
  Transmission Date: 20110219
  Serious: Yes (Other)
  Sender: FDA-Public Use
  Company Number: PHHY2010MX22358

PATIENT
  Age: 64 Year
  Sex: Female

DRUGS (4)
  1. EXFORGE [Suspect]
     Indication: HYPERTENSION
     Dosage: 1 DF, DAILY
     Route: 048
     Dates: start: 20100101, end: 20100401
  2. LEVOTHYROXINE [Concomitant]
     Dosage: UNK
  3. THEOPHYLLINE [Concomitant]
     Dosage: UNK
  4. COMBIVENT [Concomitant]

REACTIONS (3)
  - BLOOD PRESSURE INCREASED [None]
  - CONDITION AGGRAVATED [None]
  - OEDEMA PERIPHERAL [None]
